FAERS Safety Report 11051626 (Version 3)
Quarter: 2015Q3

REPORT INFORMATION
  Report Type: Spontaneous
  Country: JP (occurrence: JP)
  Receive Date: 20150421
  Receipt Date: 20150827
  Transmission Date: 20151125
  Serious: Yes (Death)
  Sender: FDA-Public Use
  Company Number: JP-009507513-1504JPN017660

PATIENT
  Sex: Male
  Weight: 47 kg

DRUGS (5)
  1. OMEPRAL [Concomitant]
     Active Substance: OMEPRAZOLE
     Indication: PROPHYLAXIS AGAINST GASTROINTESTINAL ULCER
     Dosage: 20 MG, BID
     Route: 051
     Dates: start: 20140216, end: 20140216
  2. CANCIDAS [Suspect]
     Active Substance: CASPOFUNGIN ACETATE
     Indication: CANDIDA PNEUMONIA
     Dosage: 50 MG, QD
     Route: 041
     Dates: start: 20140217, end: 20140223
  3. CANCIDAS [Suspect]
     Active Substance: CASPOFUNGIN ACETATE
     Indication: CANDIDA PNEUMONIA
     Dosage: 70 MG, ONCE
     Route: 041
     Dates: start: 20140216, end: 20140216
  4. NOREPINEPHRINE [Concomitant]
     Active Substance: NOREPINEPHRINE\NOREPINEPHRINE BITARTRATE
     Indication: SEPTIC SHOCK
     Dosage: DAILY DOSAGE UNKNOWN
     Route: 051
     Dates: start: 20140216, end: 20140224
  5. HUMULIN N [Concomitant]
     Active Substance: INSULIN HUMAN
     Indication: GLUCOSE TOLERANCE IMPAIRED
     Dosage: DAILY DOSAGE UNKNOWN
     Route: 058
     Dates: start: 20140216, end: 20140224

REACTIONS (1)
  - Myelodysplastic syndrome [Fatal]

NARRATIVE: CASE EVENT DATE: 20140224
